FAERS Safety Report 6102204-9 (Version None)
Quarter: 2009Q1

REPORT INFORMATION
  Report Type: 
  Country: None (occurrence: None)
  Receive Date: 20090304
  Receipt Date: 20090303
  Transmission Date: 20090719
  Serious: Yes (Hospitalization)
  Sender: FDA-Public Use
  Company Number: US-BRISTOL-MYERS SQUIBB COMPANY-14526701

PATIENT
  Age: 50 Year
  Sex: Male

DRUGS (7)
  1. ATAZANAVIR SULFATE [Suspect]
     Indication: HIV INFECTION
     Route: 048
     Dates: start: 20070629
  2. RITONAVIR [Suspect]
     Indication: HIV INFECTION
     Dosage: RITONAVIR CAPSULE
     Route: 048
     Dates: start: 20070629
  3. EPZICOM [Suspect]
     Indication: HIV INFECTION
     Dosage: 1 DF = ABACAVIR SULPHATE+LAMIVUDINE 600/300MG
     Route: 048
     Dates: start: 20070629
  4. MIDAZOLAM HCL [Concomitant]
     Dates: start: 20090224, end: 20090224
  5. FENTANYL [Concomitant]
     Dates: start: 20090224, end: 20090224
  6. HEPARIN [Concomitant]
     Dates: start: 20090224, end: 20090224
  7. NITROGLYCERIN [Concomitant]
     Dates: start: 20090224, end: 20090224

REACTIONS (1)
  - PERIPHERAL VASCULAR DISORDER [None]
